FAERS Safety Report 7406646-0 (Version None)
Quarter: 2011Q2

REPORT INFORMATION
  Report Type: 
  Country: None (occurrence: None)
  Receive Date: 20110411
  Receipt Date: 20110405
  Transmission Date: 20111010
  Serious: Yes (Other)
  Sender: FDA-Public Use
  Company Number: FR-BRISTOL-MYERS SQUIBB COMPANY-15656119

PATIENT
  Age: 65 Year
  Sex: Male
  Weight: 76 kg

DRUGS (1)
  1. IPILIMUMAB [Suspect]
     Indication: MALIGNANT MELANOMA
     Dosage: NO OF INF:3,2ND INF ON 19JAN11 BATCH#0D57266,3RD INF ON16FEB11 BATCH#0C66330.
     Route: 042
     Dates: start: 20101229

REACTIONS (3)
  - DIARRHOEA [None]
  - SEPSIS [None]
  - COLITIS ULCERATIVE [None]
